FAERS Safety Report 4694066-1 (Version None)
Quarter: 2005Q2

REPORT INFORMATION
  Report Type: 
  Country: None (occurrence: None)
  Receive Date: 20050616
  Receipt Date: 20050603
  Transmission Date: 20051028
  Serious: Yes (Hospitalization, Other)
  Sender: FDA-Public Use
  Company Number: 2005075997

PATIENT
  Age: 51 Year
  Sex: Male
  Weight: 88.4514 kg

DRUGS (15)
  1. BEXTRA [Suspect]
     Indication: HEADACHE
     Dosage: 40 MG (20 MG, 2 IN 1 D), ORAL
     Route: 048
     Dates: start: 20040326
  2. FOSINOPRIL SODIUM [Concomitant]
  3. TEMAZEPAM [Concomitant]
  4. PAROXETINE HCL [Concomitant]
  5. ULTRAM [Concomitant]
  6. AMBIEN [Concomitant]
  7. LIPITOR [Concomitant]
  8. CARISOPRODOL [Concomitant]
  9. TOPAMAX [Concomitant]
  10. BUTALBITAL, ACETAMINOPHEN, CAFFEINE [Concomitant]
  11. DOXEPIN HCL [Concomitant]
  12. XANAX [Concomitant]
  13. PLAVIX [Concomitant]
  14. NITROQUICK (GLYCERYL TRINITRATE) [Concomitant]
  15. LORCET-HD [Concomitant]

REACTIONS (10)
  - ANGINA PECTORIS [None]
  - BRAIN HYPOXIA [None]
  - DRUG INEFFECTIVE [None]
  - HYPERTENSION [None]
  - HYPOXIA [None]
  - LOSS OF CONSCIOUSNESS [None]
  - MYOCARDIAL INFARCTION [None]
  - POOR PERIPHERAL CIRCULATION [None]
  - REFUSAL OF TREATMENT BY PATIENT [None]
  - SELF-MEDICATION [None]
